FAERS Safety Report 10513089 (Version 4)
Quarter: 2014Q4

REPORT INFORMATION
  Report Type: Spontaneous
  Country: BR (occurrence: BR)
  Receive Date: 20141013
  Receipt Date: 20141111
  Transmission Date: 20150528
  Serious: Yes (Death, Hospitalization)
  Sender: FDA-Public Use
  Company Number: BR-PFIZER INC-2014210594

PATIENT
  Age: 76 Year
  Sex: Male
  Weight: 53 kg

DRUGS (7)
  1. AMITRIPTYLINE [Concomitant]
     Active Substance: AMITRIPTYLINE
     Indication: SLEEP DISORDER THERAPY
     Dosage: 25 MG, 1X/DAY (AT NIGHT)
  2. SIMETHICONE [Concomitant]
     Active Substance: DIMETHICONE\SILICON DIOXIDE\SIMETHICONE
     Dosage: 50 DROPS, 4X/DAY
  3. TRAMADOL [Concomitant]
     Active Substance: TRAMADOL
     Indication: PAIN
     Dosage: 50 MG, 4X/DAY (EVERY 6 HOURS)
  4. CENTELLA ASIATICA [Concomitant]
     Active Substance: CENTELLA ASIATICA
     Dosage: 350 MG, 1X/DAY (AT NIGHT)
  5. DAFLON [Concomitant]
     Active Substance: DIOSMIN\HESPERIDIN
     Indication: CARDIOVASCULAR DISORDER
     Dosage: 1000 MG, 1X/DAY
  6. SUTENT [Suspect]
     Active Substance: SUNITINIB MALATE
     Indication: RENAL CELL CARCINOMA
     Dosage: 50 MG, CYCLE 4 PER 2
     Route: 048
     Dates: start: 201407
  7. AMOXICILLIN/CLAVULANATE POTASSIUM [Concomitant]
     Indication: LIMB DISCOMFORT
     Dosage: 500 PLUS 125 MG EVERY 8 HOURS FOR 10 DAYS

REACTIONS (14)
  - Blister [Unknown]
  - Malnutrition [Not Recovered/Not Resolved]
  - Blister rupture [Unknown]
  - Skin disorder [Unknown]
  - Arrhythmia [Fatal]
  - Abdominal distension [Not Recovered/Not Resolved]
  - Eating disorder [Not Recovered/Not Resolved]
  - Decreased appetite [Not Recovered/Not Resolved]
  - Disease progression [Fatal]
  - Purulence [Unknown]
  - Nausea [Not Recovered/Not Resolved]
  - Pericardial effusion [Fatal]
  - Ageusia [Not Recovered/Not Resolved]
  - Renal cell carcinoma [Fatal]

NARRATIVE: CASE EVENT DATE: 2014
